FAERS Safety Report 16535355 (Version 2)
Quarter: 2019Q3

REPORT INFORMATION
  Report Type: Spontaneous
  Country: US (occurrence: US)
  Receive Date: 20190705
  Receipt Date: 20190716
  Transmission Date: 20191004
  Serious: No
  Sender: FDA-Public Use
  Company Number: US-ASTRAZENECA-2019SE93580

PATIENT
  Age: 819 Month
  Sex: Female
  Weight: 147.4 kg

DRUGS (18)
  1. FUROSEMIDE. [Concomitant]
     Active Substance: FUROSEMIDE
     Indication: OEDEMA PERIPHERAL
     Route: 048
  2. IRBESARTAN. [Concomitant]
     Active Substance: IRBESARTAN
     Indication: HEART RATE ABNORMAL
     Dates: start: 20190602
  3. LANTUS [Concomitant]
     Active Substance: INSULIN GLARGINE
  4. METOPROLOL SUCCINATE. [Suspect]
     Active Substance: METOPROLOL SUCCINATE
     Indication: HEART RATE ABNORMAL
     Dosage: 100MG DAILY AND 50 MG WAS ADDED AT NIGHT
     Route: 048
     Dates: start: 20190602
  5. GABAPENTIN. [Concomitant]
     Active Substance: GABAPENTIN
     Indication: NEUROPATHY PERIPHERAL
     Route: 048
  6. FUROSEMIDE. [Concomitant]
     Active Substance: FUROSEMIDE
     Indication: OEDEMA PERIPHERAL
     Route: 048
  7. VITAMIN B12 [Concomitant]
     Active Substance: CYANOCOBALAMIN
  8. CALCIUM [Concomitant]
     Active Substance: CALCIUM
  9. METFORMIN [Concomitant]
     Active Substance: METFORMIN HYDROCHLORIDE
     Indication: DIABETES MELLITUS
     Route: 048
  10. PRAVASTATIN. [Concomitant]
     Active Substance: PRAVASTATIN
     Indication: BLOOD CHOLESTEROL ABNORMAL
  11. MELATONIN [Concomitant]
     Active Substance: MELATONIN
  12. BYDUREON [Suspect]
     Active Substance: EXENATIDE
     Indication: GLYCOSYLATED HAEMOGLOBIN INCREASED
     Route: 058
     Dates: start: 2018
  13. ZADITOR [Concomitant]
     Active Substance: KETOTIFEN FUMARATE
     Indication: EYE DISORDER
     Route: 047
  14. IRBESARTAN. [Concomitant]
     Active Substance: IRBESARTAN
     Indication: HEART RATE ABNORMAL
     Dates: end: 20190601
  15. VITAMIN D3 [Concomitant]
     Active Substance: CHOLECALCIFEROL
  16. METOPROLOL SUCCINATE. [Suspect]
     Active Substance: METOPROLOL SUCCINATE
     Indication: HEART RATE ABNORMAL
     Route: 048
     Dates: end: 20190601
  17. WARFARIN [Concomitant]
     Active Substance: WARFARIN
     Indication: HEART RATE ABNORMAL
  18. POTASSIUM [Concomitant]
     Active Substance: POTASSIUM
     Indication: ILL-DEFINED DISORDER
     Dosage: AS REQUIRED

REACTIONS (7)
  - Product packaging quantity issue [Unknown]
  - Incorrect dose administered by device [Not Recovered/Not Resolved]
  - Wrong technique in product usage process [Not Recovered/Not Resolved]
  - Skin disorder [Recovered/Resolved]
  - Vision blurred [Not Recovered/Not Resolved]
  - Urinary tract infection [Unknown]
  - Heart rate irregular [Unknown]

NARRATIVE: CASE EVENT DATE: 201903
